FAERS Safety Report 25135179 (Version 1)
Quarter: 2025Q1

REPORT INFORMATION
  Report Type: Spontaneous
  Country: DE (occurrence: DE)
  Receive Date: 20250328
  Receipt Date: 20250328
  Transmission Date: 20250408
  Serious: Yes (Other)
  Sender: SANDOZ
  Company Number: DE-ABBVIE-6179511

PATIENT
  Age: 39 Year
  Sex: Female

DRUGS (2)
  1. ADALIMUMAB [Suspect]
     Active Substance: ADALIMUMAB
     Indication: Crohn^s disease
     Route: 065
     Dates: start: 202103, end: 202108
  2. RISANKIZUMAB [Suspect]
     Active Substance: RISANKIZUMAB
     Indication: Crohn^s disease
     Route: 065
     Dates: start: 202312

REACTIONS (4)
  - Parietal lobe epilepsy [Unknown]
  - Disseminated tuberculosis [Recovered/Resolved]
  - Crohn^s disease [Unknown]
  - Mycobacterial infection [Unknown]

NARRATIVE: CASE EVENT DATE: 20210901
